FAERS Safety Report 7780683-9 (Version None)
Quarter: 2011Q3

REPORT INFORMATION
  Report Type: 
  Country: None (occurrence: None)
  Receive Date: 20110927
  Receipt Date: 20110503
  Transmission Date: 20111222
  Serious: No
  Sender: FDA-Public Use
  Company Number: US-BRISTOL-MYERS SQUIBB COMPANY-15619075

PATIENT
  Age: 73 Year
  Sex: Female

DRUGS (3)
  1. HYDROCHLOROTHIAZIDE [Suspect]
     Dosage: 1 DF= 25 MG HALF
  2. AVAPRO [Suspect]
     Dosage: 1 DF= 300 MG 1/2
  3. AVALIDE [Suspect]
     Dosage: 1 DF:AVALIDE 300MG 1/2 BID WITH HCTZ 25MG 1/2 BID
     Route: 048
     Dates: end: 20110209

REACTIONS (8)
  - TINNITUS [None]
  - FLUSHING [None]
  - CHEST PAIN [None]
  - FATIGUE [None]
  - DIZZINESS [None]
  - HYPERTENSION [None]
  - HEARING IMPAIRED [None]
  - HEADACHE [None]
